FAERS Safety Report 11046089 (Version 2)
Quarter: 2015Q2

REPORT INFORMATION
  Report Type: Spontaneous
  Country: US (occurrence: US)
  Receive Date: 20150418
  Receipt Date: 20150524
  Transmission Date: 20150821
  Serious: No
  Sender: FDA-Public Use
  Company Number: US-JNJFOC-20130705092

PATIENT
  Age: 68 Year
  Sex: Female
  Weight: 72.58 kg

DRUGS (2)
  1. NIZORAL A-D [Suspect]
     Active Substance: KETOCONAZOLE
     Indication: ECZEMA
     Dosage: SEVERAL TIMES A DAY
     Route: 050
  2. NIZORAL A-D [Suspect]
     Active Substance: KETOCONAZOLE
     Indication: SKIN FISSURES
     Dosage: SEVERAL TIMES A DAY
     Route: 050

REACTIONS (4)
  - Product use issue [Recovered/Resolved]
  - Therapeutic response unexpected [Unknown]
  - Inappropriate schedule of drug administration [Unknown]
  - Drug administered at inappropriate site [Unknown]
